FAERS Safety Report 24641709 (Version 1)
Quarter: 2024Q4

REPORT INFORMATION
  Report Type: Spontaneous
  Country: US (occurrence: None)
  Receive Date: 20241118
  Receipt Date: 20241118
  Transmission Date: 20250115
  Serious: Yes (Death, Other)
  Sender: Public
  Company Number: None

PATIENT
  Age: 84 Year
  Sex: Male
  Weight: 102.7 kg

DRUGS (2)
  1. RELISTOR [Suspect]
     Active Substance: METHYLNALTREXONE BROMIDE
     Indication: Constipation
     Dosage: FREQUENCY : DAILY;?
     Route: 058
     Dates: start: 20241111, end: 20241112
  2. RELISTOR [Suspect]
     Active Substance: METHYLNALTREXONE BROMIDE
     Indication: Constipation

REACTIONS (7)
  - Pleural effusion [None]
  - Blood creatinine increased [None]
  - General physical health deterioration [None]
  - Small intestinal obstruction [None]
  - Peritonitis [None]
  - Gastrointestinal necrosis [None]
  - Intestinal perforation [None]

NARRATIVE: CASE EVENT DATE: 20241113
